FAERS Safety Report 8941618 (Version 2)
Quarter: 2012Q4

REPORT INFORMATION
  Report Type: 
  Country: US (occurrence: US)
  Receive Date: 20121203
  Receipt Date: 20121221
  Transmission Date: 20130627
  Serious: Yes (Death, Other)
  Sender: FDA-Public Use
  Company Number: US-JNJFOC-20121114795

PATIENT
  Age: 62 Year
  Sex: Female

DRUGS (12)
  1. DOXORUBICIN [Suspect]
     Indication: BREAST CANCER
     Dosage: every 2 or 3 weeks
     Route: 042
  2. DOXORUBICIN [Suspect]
     Indication: BREAST CANCER
     Dosage: every 2 or 3 weeks
     Route: 042
  3. DOXORUBICIN [Suspect]
     Indication: BREAST CANCER
     Dosage: every 2 or 3 weeks
     Route: 042
  4. DOXORUBICIN [Suspect]
     Indication: BREAST CANCER
     Dosage: every 2 or 3 weeks
     Route: 042
  5. DOXORUBICIN [Suspect]
     Indication: BREAST CANCER
     Dosage: every 2 or 3 weeks
     Route: 065
  6. DOXORUBICIN [Suspect]
     Indication: BREAST CANCER
     Dosage: every 2 or 3 weeks
     Route: 065
  7. DOXORUBICIN [Suspect]
     Indication: BREAST CANCER
     Dosage: every 2 or 3 weeks
     Route: 065
  8. DOXORUBICIN [Suspect]
     Indication: BREAST CANCER
     Dosage: every 2 or 3 weeks
     Route: 065
  9. CYCLOPHOSPHAMIDE [Suspect]
     Indication: BREAST CANCER
     Dosage: every 2 or 3 weeks
     Route: 065
  10. CYCLOPHOSPHAMIDE [Suspect]
     Indication: BREAST CANCER
     Dosage: every 2 or 3 weeks
     Route: 065
  11. CYCLOPHOSPHAMIDE [Suspect]
     Indication: BREAST CANCER
     Dosage: every 2 or 3 weeks
     Route: 065
  12. CYCLOPHOSPHAMIDE [Suspect]
     Indication: BREAST CANCER
     Dosage: every 2 or 3 weeks
     Route: 065

REACTIONS (2)
  - Acute myeloid leukaemia [Fatal]
  - Myelodysplastic syndrome [Unknown]
